FAERS Safety Report 7091951-0 (Version None)
Quarter: 2010Q4

REPORT INFORMATION
  Report Type: 
  Country: None (occurrence: None)
  Receive Date: 20101101
  Receipt Date: 20101006
  Transmission Date: 20110411
  Serious: Yes (Other)
  Sender: FDA-Public Use
  Company Number: 67515

PATIENT
  Age: 66 Year
  Sex: Female

DRUGS (3)
  1. ROHTO ARCTIC REDNESS RELIEVER [Suspect]
     Indication: ERYTHEMA
     Dosage: SEVERAL DROPS IN RT. EYE
     Dates: start: 20100921, end: 20100922
  2. ROHTO ARCTIC REDNESS RELIEVER [Suspect]
     Indication: EYE IRRITATION
     Dosage: SEVERAL DROPS IN RT. EYE
     Dates: start: 20100921, end: 20100922
  3. MULTIVITAMIN [Concomitant]

REACTIONS (3)
  - APPLICATION SITE ERYTHEMA [None]
  - APPLICATION SITE PAIN [None]
  - VISION BLURRED [None]
